FAERS Safety Report 6508983-0 (Version None)
Quarter: 2009Q4

REPORT INFORMATION
  Report Type: 
  Country: None (occurrence: None)
  Receive Date: 20091221
  Receipt Date: 20090923
  Transmission Date: 20100525
  Serious: No
  Sender: FDA-Public Use
  Company Number: US-ASTRAZENECA-2009SE10877

PATIENT
  Sex: Female
  Weight: 49.4 kg

DRUGS (8)
  1. CRESTOR [Suspect]
     Dosage: 1/2 TABLET DAILY
     Route: 048
     Dates: start: 20090722, end: 20090804
  2. CRESTOR [Suspect]
     Route: 048
     Dates: start: 20090804
  3. CRESTOR [Suspect]
     Dosage: 1/2 TABLET FOR 2-3 DAYS, STOPPED TAKING FOR 2-3 DAYS AND THEN 1/2 TABLET AGAIN FOR 2-3 DAYS
     Route: 048
  4. TRICOR [Concomitant]
     Indication: BLOOD CHOLESTEROL
  5. TRANDATE [Concomitant]
     Indication: HYPERTENSION
  6. VERAPAMIL [Concomitant]
     Indication: HYPERTENSION
  7. DIAZIDE [Concomitant]
     Indication: HYPERTENSION
  8. LORAZEPAM [Concomitant]
     Indication: SLEEP DISORDER

REACTIONS (2)
  - MYALGIA [None]
  - PRODUCT TASTE ABNORMAL [None]
